FAERS Safety Report 9331165 (Version 2)
Quarter: 2013Q4

REPORT INFORMATION
  Report Type: Spontaneous
  Country: GB (occurrence: GB)
  Receive Date: 20130605
  Receipt Date: 20131113
  Transmission Date: 20140711
  Serious: Yes (Other)
  Sender: FDA-Public Use
  Company Number: PHHY2013GB054685

PATIENT
  Age: 80 Year
  Sex: Female

DRUGS (10)
  1. ALENDRONIC ACID [Suspect]
     Indication: OSTEOPOROSIS
     Dosage: 70 MG, QW
     Route: 048
     Dates: start: 20121101, end: 20130515
  2. CO-AMILOFRUSE [Concomitant]
  3. CO-CODAMOL [Concomitant]
  4. COLECALCIFEROL [Concomitant]
  5. DIGOXIN [Concomitant]
  6. FYBOGEL [Concomitant]
  7. GAVISCON [Concomitant]
  8. MIGRALEVE [Concomitant]
  9. SIMVASTATIN [Concomitant]
  10. WARFARIN [Concomitant]

REACTIONS (1)
  - Varicose vein [Not Recovered/Not Resolved]
